FAERS Safety Report 5280145-7 (Version None)
Quarter: 2007Q1

REPORT INFORMATION
  Report Type: 
  Country: None (occurrence: None)
  Receive Date: 20070322
  Receipt Date: 20070313
  Transmission Date: 20070707
  Serious: Yes (Other)
  Sender: FDA-Public Use
  Company Number: 100#08#2007-00816

PATIENT
  Age: 62 Year
  Sex: Male

DRUGS (5)
  1. CARBOPLATIN [Suspect]
     Indication: NON-SMALL CELL LUNG CANCER
     Dosage: UNKNOWN INTRAVENOUS (NOT OTHERWISE SPECIFIED)
     Route: 042
  2. CISPLATIN [Suspect]
     Indication: NON-SMALL CELL LUNG CANCER
     Dosage: 60 MG/M2 PER COURSE INTRAVENOUS (NOT OTHERWISE SPECIFIED)
     Route: 042
  3. ETOPOSIDE [Suspect]
     Indication: NON-SMALL CELL LUNG CANCER
     Dosage: 120 MG/M2 PER COURSE. INTRAVENOUS (NOT OTHERWISE SPECIFIED)
     Route: 042
  4. PACLITAXEL (PACLITAXEL) (PACLITAXEL) [Concomitant]
  5. RADIOTHERAPY [Concomitant]

REACTIONS (7)
  - CHRONIC MYELOMONOCYTIC LEUKAEMIA [None]
  - MALIGNANT NEOPLASM PROGRESSION [None]
  - METASTASES TO LUNG [None]
  - NO THERAPEUTIC RESPONSE [None]
  - NON-SMALL CELL LUNG CANCER [None]
  - THERAPEUTIC RESPONSE DECREASED [None]
  - TRISOMY 8 [None]
